FAERS Safety Report 9684522 (Version 2)
Quarter: 2014Q1

REPORT INFORMATION
  Report Type: Spontaneous
  Country: AU (occurrence: AU)
  Receive Date: 20131112
  Receipt Date: 20140214
  Transmission Date: 20141002
  Serious: Yes (Other)
  Sender: FDA-Public Use
  Company Number: AU-ABBVIE-13P-008-1168289-00

PATIENT
  Sex: Male
  Weight: 77.4 kg

DRUGS (1)
  1. CREON [Suspect]
     Indication: PANCREATICODUODENECTOMY

REACTIONS (6)
  - Pancreatic carcinoma [Unknown]
  - Flatulence [Unknown]
  - Pancreatic operation [Unknown]
  - Diarrhoea [Unknown]
  - Wrong technique in drug usage process [Unknown]
  - Incorrect dose administered [Unknown]
